FAERS Safety Report 8565284-7 (Version None)
Quarter: 2012Q3

REPORT INFORMATION
  Report Type: 
  Country: None (occurrence: None)
  Receive Date: 20120803
  Receipt Date: 20120725
  Transmission Date: 20120928
  Serious: Yes (Other)
  Sender: FDA-Public Use
  Company Number: JP-009507513-2012SP026205

PATIENT

DRUGS (24)
  1. REBETOL [Suspect]
     Indication: HEPATITIS C
     Dosage: 400 MG, QD
     Route: 048
     Dates: start: 20120117, end: 20120226
  2. ANTIVIRAL (UNSPECIFIED) [Suspect]
     Indication: HEPATITIS C
     Dosage: 1500 MG, QD
     Route: 048
     Dates: start: 20120117, end: 20120318
  3. CLARITIN REDITABS [Concomitant]
     Indication: PROPHYLAXIS
     Dosage: 10 MG, QD
     Route: 048
  4. EPADEL S [Concomitant]
     Indication: HYPERLIPIDAEMIA
     Route: 048
  5. TELAVIC [Suspect]
     Indication: HEPATITIS C
     Route: 048
     Dates: start: 20120117, end: 20120318
  6. PEG-INTRON [Suspect]
     Dosage: 1.5MCG/KG/WEEK
     Route: 058
     Dates: end: 20120625
  7. ANTIVIRAL (UNSPECIFIED) [Suspect]
     Dosage: 1000 MG, QD
     Route: 048
     Dates: start: 20120319, end: 20120408
  8. DEPAS [Concomitant]
     Route: 048
  9. FEROTYM [Concomitant]
     Indication: IRON DEFICIENCY ANAEMIA
     Route: 048
  10. LIVALO [Concomitant]
     Indication: HYPERLIPIDAEMIA
     Dosage: FORMULATION POR
     Route: 048
  11. REBETOL [Suspect]
     Dosage: 200 MG, QD
     Route: 048
     Dates: start: 20120227
  12. REBETOL [Suspect]
     Route: 048
     Dates: start: 20120514, end: 20120625
  13. MICARDIS [Concomitant]
     Indication: HYPERTENSION
     Dosage: FORMULATION POR
     Route: 048
  14. MICARDIS [Concomitant]
     Route: 048
  15. PEG-INTRON [Suspect]
     Indication: HEPATITIS C
     Dosage: 1.5 ?G/KG, QW
     Route: 058
  16. LIVALO [Concomitant]
     Route: 048
  17. SODIUM FERROUS CITRATE [Concomitant]
     Indication: IRON DEFICIENCY ANAEMIA
     Dosage: FORMULATION POR
     Route: 048
  18. TELAVIC [Suspect]
     Route: 048
     Dates: start: 20120319, end: 20120408
  19. REBETOL [Suspect]
     Route: 048
     Dates: start: 20120227, end: 20120513
  20. DIHYDROERGOCRISTINE MESYLATE [Concomitant]
     Indication: INSOMNIA
     Dosage: FORMULATION POR
     Route: 048
  21. DEPAS [Concomitant]
     Indication: INSOMNIA
     Dosage: 1 MG, QD
     Route: 048
  22. CLARITIN REDITABS [Concomitant]
     Route: 048
  23. EPADEL [Concomitant]
     Indication: HYPERLIPIDAEMIA
     Dosage: FORMULATION POR
     Route: 048
  24. EURODIN (DIHYDROERGOCRISTINE MESYLATE) [Concomitant]
     Indication: INSOMNIA
     Route: 048

REACTIONS (1)
  - ANAEMIA [None]
